FAERS Safety Report 7057600-2 (Version None)
Quarter: 2010Q4

REPORT INFORMATION
  Report Type: 
  Country: None (occurrence: None)
  Receive Date: 20101022
  Receipt Date: 20101015
  Transmission Date: 20110411
  Serious: Yes (Hospitalization)
  Sender: FDA-Public Use
  Company Number: US-ROCHE-734670

PATIENT
  Sex: Male
  Weight: 90.7 kg

DRUGS (1)
  1. XELODA [Suspect]
     Route: 048
     Dates: start: 20100401, end: 20100430

REACTIONS (2)
  - PNEUMONIA [None]
  - PULMONARY OEDEMA [None]
